FAERS Safety Report 9251788 (Version 1)
Quarter: 2013Q2

REPORT INFORMATION
  Report Type: Spontaneous
  Country: US (occurrence: US)
  Receive Date: 20130424
  Receipt Date: 20130424
  Transmission Date: 20140414
  Serious: No
  Sender: FDA-Public Use
  Company Number: US-PFIZER INC-2013123710

PATIENT
  Age: 78 Year
  Sex: Male

DRUGS (6)
  1. INLYTA [Suspect]
     Indication: RENAL CANCER
     Dosage: 1 MG, UNK
     Dates: start: 20130328
  2. BUMETANIDE [Concomitant]
     Dosage: UNK
  3. EFFEXOR-XR [Concomitant]
     Dosage: UNK
  4. INSULIN DETEMIR [Concomitant]
     Dosage: UNK
  5. LORAZEPAM [Concomitant]
     Dosage: UNK
  6. PLAVIX [Concomitant]
     Dosage: UNK

REACTIONS (2)
  - Dyspnoea [Unknown]
  - Oral pain [Unknown]
